FAERS Safety Report 16163185 (Version 1)
Quarter: 2019Q2

REPORT INFORMATION
  Report Type: Spontaneous
  Country: US (occurrence: US)
  Receive Date: 20190405
  Receipt Date: 20190405
  Transmission Date: 20190711
  Serious: No
  Sender: FDA-Public Use
  Company Number: US-ALLERGAN-1844396US

PATIENT
  Age: 75 Year
  Sex: Female

DRUGS (1)
  1. ZENPEP [Suspect]
     Active Substance: PANCRELIPASE AMYLASE\PANCRELIPASE LIPASE\PANCRELIPASE PROTEASE
     Indication: PRODUCT USED FOR UNKNOWN INDICATION
     Dosage: ACTUAL: 10,000 UNITS 2 CAPSULES THREE TIMES DAILY
     Route: 048
     Dates: start: 201808, end: 20180907

REACTIONS (5)
  - Anorectal discomfort [Unknown]
  - Rectal spasm [Unknown]
  - Diarrhoea [Not Recovered/Not Resolved]
  - Malaise [Unknown]
  - Proctalgia [Unknown]

NARRATIVE: CASE EVENT DATE: 2018
